FAERS Safety Report 22370926 (Version 1)
Quarter: 2023Q2

REPORT INFORMATION
  Report Type: Spontaneous
  Country: US (occurrence: US)
  Receive Date: 20230526
  Receipt Date: 20230526
  Transmission Date: 20230721
  Serious: No
  Sender: FDA-Public Use
  Company Number: US-CADILA HEALTHCARE LIMITED-US-ZYDUS-086214

PATIENT

DRUGS (2)
  1. MELOXICAM [Suspect]
     Active Substance: MELOXICAM
     Indication: Pain
     Dosage: , QD
     Route: 048
     Dates: start: 202211, end: 202212
  2. MELOXICAM [Suspect]
     Active Substance: MELOXICAM
     Indication: Off label use

REACTIONS (5)
  - Skin exfoliation [Recovered/Resolved]
  - Product substitution issue [Recovered/Resolved]
  - Product use in unapproved indication [Recovered/Resolved]
  - Rash [None]
  - Dizziness [Recovered/Resolved]

NARRATIVE: CASE EVENT DATE: 20221101
